FAERS Safety Report 5015919-0 (Version None)
Quarter: 2006Q2

REPORT INFORMATION
  Report Type: 
  Country: None (occurrence: None)
  Receive Date: 20060425
  Receipt Date: 20060130
  Transmission Date: 20061013
  Serious: Yes (Life-Threatening)
  Sender: FDA-Public Use
  Company Number: 220528

PATIENT
  Age: 43 Year
  Sex: Female
  Weight: 77.1 kg

DRUGS (8)
  1. XOLAIR [Suspect]
     Indication: ASTHMA
     Dosage: 300 MG, Q2W, SUBCUTANEOUS
     Route: 058
     Dates: start: 20051202, end: 20051215
  2. CLARINEX [Concomitant]
  3. SINGULAIR [Concomitant]
  4. SPIRIVA [Concomitant]
  5. ALBUTEROL (ALBUTEROL/ALBUTEROL SULFATE) [Concomitant]
  6. PREDNISONE TAB [Concomitant]
  7. FORADIL [Concomitant]
  8. NASONEX [Concomitant]

REACTIONS (1)
  - ANAPHYLACTIC REACTION [None]
